FAERS Safety Report 8847362 (Version 3)
Quarter: 2014Q2

REPORT INFORMATION
  Report Type: Spontaneous
  Country: CA (occurrence: CA)
  Receive Date: 20121018
  Receipt Date: 20140410
  Transmission Date: 20141212
  Serious: No
  Sender: FDA-Public Use
  Company Number: CA-ELI_LILLY_AND_COMPANY-CA201210001927

PATIENT
  Sex: Female

DRUGS (1)
  1. PROZAC [Suspect]
     Indication: ANXIETY
     Dosage: 1 DF, UNKNOWN
     Route: 065

REACTIONS (1)
  - Peripheral swelling [Unknown]
